FAERS Safety Report 8163351-3 (Version None)
Quarter: 2012Q1

REPORT INFORMATION
  Report Type: 
  Country: None (occurrence: None)
  Receive Date: 20120224
  Receipt Date: 20120210
  Transmission Date: 20120608
  Serious: Yes (Life-Threatening, Hospitalization)
  Sender: FDA-Public Use
  Company Number: DE-RANBAXY-2009RR-25695

PATIENT
  Age: 47 Year
  Sex: Male

DRUGS (1)
  1. ACETAMINOPHEN [Suspect]
     Indication: TOOTHACHE
     Dosage: 500 MG
     Route: 048
     Dates: start: 20090330, end: 20090330

REACTIONS (2)
  - OVERDOSE [None]
  - ACUTE HEPATIC FAILURE [None]
